FAERS Safety Report 19732495 (Version 1)
Quarter: 2021Q3

REPORT INFORMATION
  Report Type: Spontaneous
  Country: US (occurrence: US)
  Receive Date: 20210822
  Receipt Date: 20210822
  Transmission Date: 20211014
  Serious: No
  Sender: FDA-Public Use
  Company Number: US-TEVA-2021-US-1937255

PATIENT
  Sex: Female

DRUGS (1)
  1. JUNEL FE 1/20 [Suspect]
     Active Substance: ETHINYL ESTRADIOL\NORETHINDRONE ACETATE
     Route: 065

REACTIONS (4)
  - Toothache [Not Recovered/Not Resolved]
  - Gastrointestinal disorder [Recovered/Resolved]
  - Acne [Unknown]
  - Rash [Unknown]
